FAERS Safety Report 25014912 (Version 1)
Quarter: 2025Q1

REPORT INFORMATION
  Report Type: Spontaneous
  Country: US (occurrence: US)
  Receive Date: 20250226
  Receipt Date: 20250226
  Transmission Date: 20250409
  Serious: No
  Sender: EISAI
  Company Number: US-Eisai-EC-2025-183834

PATIENT
  Age: 86 Year
  Sex: Male

DRUGS (1)
  1. LEQEMBI [Suspect]
     Active Substance: LECANEMAB-IRMB
     Indication: Product used for unknown indication

REACTIONS (5)
  - Chills [Unknown]
  - Dyspnoea [Unknown]
  - Flushing [Unknown]
  - Pyrexia [Unknown]
  - Nausea [Unknown]
